FAERS Safety Report 18142154 (Version 2)
Quarter: 2021Q4

REPORT INFORMATION
  Report Type: Spontaneous
  Country: DE (occurrence: DE)
  Receive Date: 20200812
  Receipt Date: 20211124
  Transmission Date: 20220303
  Serious: Yes (Hospitalization)
  Sender: FDA-Public Use
  Company Number: DE-ADRED-04666-01

PATIENT
  Age: 84 Year
  Sex: Female
  Weight: 83 kg

DRUGS (10)
  1. TORSEMIDE [Suspect]
     Active Substance: TORSEMIDE
     Indication: Product used for unknown indication
     Dosage: 10 MILLIGRAM, BID
     Route: 048
  2. AMLODIPINE BESYLATE\CANDESARTAN CILEXETIL [Suspect]
     Active Substance: AMLODIPINE BESYLATE\CANDESARTAN CILEXETIL
     Indication: Product used for unknown indication
     Dosage: UNK UNK, BID, 10/16 MG, 1-0-1-0, TABLETTEN
     Route: 048
  3. MOXONIDINE [Concomitant]
     Active Substance: MOXONIDINE
     Dosage: 0.2 MILLIGRAM, BID, 0.2 MG, 1-0-1-0, TABLETTEN
     Route: 048
  4. GABAPENTIN [Concomitant]
     Active Substance: GABAPENTIN
     Dosage: UNK (100 MG, 1-0-0-2, KAPSELN)
     Route: 048
  5. FEBUXOSTAT [Concomitant]
     Active Substance: FEBUXOSTAT
     Dosage: 80 MILLIGRAM, QD, 80 MG, 1-0-0-0, TABLETTEN
     Route: 048
  6. AMITRIPTYLINE [Concomitant]
     Active Substance: AMITRIPTYLINE
     Dosage: UNK (100 MG, 0-0-0.5-0, RETARD-TABLETTEN)
     Route: 048
  7. LEVOTHYROXINE [Concomitant]
     Active Substance: LEVOTHYROXINE
     Dosage: 0.125 MILLIGRAM, QD, 0.125 MG, 1-0-0-0, TABLETTEN
     Route: 048
  8. CARVEDILOL [Concomitant]
     Active Substance: CARVEDILOL
     Dosage: 12.5 MILLIGRAM, BID, 12.5 MG, 1-1-0-0, TABLETTEN
     Route: 048
  9. ASPIRIN [Concomitant]
     Active Substance: ASPIRIN
     Dosage: 100 MILLIGRAM, QD, 100 MG, 0-1-0-0, TABLETTEN
     Route: 048
  10. CHOLECALCIFEROL [Concomitant]
     Active Substance: CHOLECALCIFEROL
     Dosage: UNK, QD (UNK, QD, 20000 IE, 1-0-0-0, KAPSELN)
     Route: 048

REACTIONS (7)
  - Electrolyte imbalance [Unknown]
  - Oedema peripheral [Unknown]
  - Pain [Unknown]
  - Renal impairment [Unknown]
  - Pain in extremity [Unknown]
  - Dyspnoea [Unknown]
  - Arthralgia [Unknown]
